FAERS Safety Report 8035589-7 (Version None)
Quarter: 2012Q1

REPORT INFORMATION
  Report Type: 
  Country: None (occurrence: None)
  Receive Date: 20120110
  Receipt Date: 20120110
  Transmission Date: 20120608
  Serious: Yes (Other)
  Sender: FDA-Public Use
  Company Number: None

PATIENT
  Sex: Female
  Weight: 2.4 kg

DRUGS (2)
  1. CALCIUM CHLORIDE [Suspect]
     Indication: MINERAL SUPPLEMENTATION
     Dosage: 360 MG ONCE IV INFUSION; 354 MG ONCE IV INFUSIONS
     Route: 042
     Dates: start: 20110814
  2. CALCIUM CHLORIDE [Suspect]
     Indication: MINERAL SUPPLEMENTATION
     Dosage: 360 MG ONCE IV INFUSION; 354 MG ONCE IV INFUSIONS
     Route: 042
     Dates: start: 20110813

REACTIONS (4)
  - PURPURA [None]
  - INFUSION SITE ERYTHEMA [None]
  - INFUSION SITE REACTION [None]
  - INFUSION SITE OEDEMA [None]
